FAERS Safety Report 8332637-1 (Version None)
Quarter: 2012Q2

REPORT INFORMATION
  Report Type: 
  Country: None (occurrence: None)
  Receive Date: 20120503
  Receipt Date: 20120418
  Transmission Date: 20120825
  Serious: Yes (Other)
  Sender: FDA-Public Use
  Company Number: CN-JNJFOC-20110207449

PATIENT
  Sex: Female

DRUGS (5)
  1. RISPERDAL [Suspect]
     Route: 048
     Dates: start: 20100307, end: 20110307
  2. RISPERDAL [Suspect]
     Route: 048
  3. BENZHEXOL [Suspect]
     Indication: SCHIZOPHRENIA
     Route: 065
     Dates: start: 20100101
  4. RISPERDAL [Suspect]
     Indication: SCHIZOPHRENIA
     Route: 048
     Dates: start: 20110222, end: 20110222
  5. RISPERDAL [Suspect]
     Route: 048
     Dates: start: 20100101, end: 20100101

REACTIONS (5)
  - LETHARGY [None]
  - SUICIDE ATTEMPT [None]
  - INTENTIONAL OVERDOSE [None]
  - HYPERHIDROSIS [None]
  - SOMNOLENCE [None]
